FAERS Safety Report 6757556-3 (Version None)
Quarter: 2010Q2

REPORT INFORMATION
  Report Type: 
  Country: None (occurrence: None)
  Receive Date: 20100607
  Receipt Date: 20100526
  Transmission Date: 20101027
  Serious: Yes (Life-Threatening, Other)
  Sender: FDA-Public Use
  Company Number: CA-RANBAXY-2010US-34003

PATIENT

DRUGS (3)
  1. VANCOMYCIN [Suspect]
     Indication: PARONYCHIA
     Dosage: 1 G OVER A 1 HR INFUSION
     Route: 042
  2. LEVOFLOXACIN [Suspect]
     Indication: PARONYCHIA
     Route: 065
  3. CLINDAMYCIN [Suspect]
     Indication: PARONYCHIA
     Route: 065

REACTIONS (4)
  - DRUG INEFFECTIVE [None]
  - RED MAN SYNDROME [None]
  - UTERINE SPASM [None]
  - VAGINAL HAEMORRHAGE [None]
